FAERS Safety Report 8139207-9 (Version None)
Quarter: 2012Q1

REPORT INFORMATION
  Report Type: 
  Country: None (occurrence: None)
  Receive Date: 20120215
  Receipt Date: 20120210
  Transmission Date: 20120608
  Serious: Yes (Hospitalization)
  Sender: FDA-Public Use
  Company Number: SG-BAYER-2012-013778

PATIENT
  Age: 78 Year
  Sex: Female

DRUGS (2)
  1. LEVOFLOXACIN [Suspect]
  2. CIPROFLOXACIN HCL [Suspect]

REACTIONS (1)
  - ACUTE GENERALISED EXANTHEMATOUS PUSTULOSIS [None]
